FAERS Safety Report 25047354 (Version 1)
Quarter: 2025Q1

REPORT INFORMATION
  Report Type: Spontaneous
  Country: PL (occurrence: PL)
  Receive Date: 20250306
  Receipt Date: 20250306
  Transmission Date: 20250408
  Serious: Yes (Hospitalization)
  Sender: TEVA
  Company Number: None

PATIENT
  Age: 89 Year
  Sex: Female
  Weight: 68 kg

DRUGS (5)
  1. ALENDRONIC ACID [Suspect]
     Active Substance: ALENDRONIC ACID
     Indication: Osteoporosis
     Route: 048
  2. CHOLECALCIFEROL [Concomitant]
     Active Substance: CHOLECALCIFEROL
     Indication: Osteoporosis
     Dosage: THERAPY ONGOING; VIGANTOLETTEN 1000 25 MICROGRAMS (1000 IU), TABLETS
     Route: 065
  3. BISOPROLOL FUMARATE [Concomitant]
     Active Substance: BISOPROLOL FUMARATE
     Indication: Hypertension
     Dosage: THERAPY ONGOING
     Route: 065
  4. PERINDOPRIL [Concomitant]
     Active Substance: PERINDOPRIL
     Indication: Hypertension
     Dosage: THERAPY ONGOING
     Route: 048
  5. CALPEROS [Concomitant]
     Indication: Osteoporosis
     Dosage: THERAPY ONGOING; CALPEROS 1000
     Route: 048

REACTIONS (12)
  - Presyncope [Unknown]
  - Fall [Unknown]
  - Hyperhidrosis [Unknown]
  - Hypoacusis [Unknown]
  - Pain [Unknown]
  - Nausea [Unknown]
  - Loss of consciousness [Unknown]
  - Abdominal pain upper [Unknown]
  - Weight decreased [Unknown]
  - Dizziness [Unknown]
  - Chest pain [Unknown]
  - Visual impairment [Unknown]
